FAERS Safety Report 5592402-5 (Version None)
Quarter: 2008Q1

REPORT INFORMATION
  Report Type: 
  Country: None (occurrence: None)
  Receive Date: 20080115
  Receipt Date: 20080103
  Transmission Date: 20080703
  Serious: Yes (Other)
  Sender: FDA-Public Use
  Company Number: SE-PFIZER INC-2007095198

PATIENT
  Sex: Male

DRUGS (2)
  1. LYRICA [Suspect]
     Indication: GENERALISED ANXIETY DISORDER
  2. LYRICA [Suspect]
     Indication: PAIN

REACTIONS (3)
  - JOINT EFFUSION [None]
  - JOINT SWELLING [None]
  - MUSCULOSKELETAL PAIN [None]
